FAERS Safety Report 7494416-7 (Version None)
Quarter: 2011Q2

REPORT INFORMATION
  Report Type: 
  Country: None (occurrence: None)
  Receive Date: 20110520
  Receipt Date: 20110506
  Transmission Date: 20111010
  Serious: Yes (Other)
  Sender: FDA-Public Use
  Company Number: TR-WATSON-2011-06652

PATIENT
  Age: 81 Year
  Sex: Male

DRUGS (1)
  1. PREDNISOLONE [Suspect]
     Indication: PARALYSIS
     Dosage: 1 MG/KG, DAILY

REACTIONS (1)
  - NECROTISING RETINITIS [None]
